FAERS Safety Report 15215749 (Version 1)
Quarter: 2018Q3

REPORT INFORMATION
  Report Type: Spontaneous
  Country: US (occurrence: US)
  Receive Date: 20180703
  Receipt Date: 20180703
  Transmission Date: 20181010
  Serious: No
  Sender: FDA-Public Use
  Company Number: None

PATIENT
  Sex: Female

DRUGS (3)
  1. AFINITOR [Suspect]
     Active Substance: EVEROLIMUS
     Indication: SMALL INTESTINE CARCINOMA
     Route: 048
     Dates: start: 20180301
  2. OXYCODONE [Concomitant]
     Active Substance: OXYCODONE
  3. MAPAP [Concomitant]
     Active Substance: ACETAMINOPHEN

REACTIONS (2)
  - Nausea [None]
  - Fatigue [None]
